FAERS Safety Report 15570313 (Version 1)
Quarter: 2018Q4

REPORT INFORMATION
  Report Type: Spontaneous
  Country: US (occurrence: US)
  Receive Date: 20181031
  Receipt Date: 20181031
  Transmission Date: 20190205
  Serious: No
  Sender: FDA-Public Use
  Company Number: US-ABBVIE-18P-163-2266885-00

PATIENT
  Weight: 63.5 kg

DRUGS (1)
  1. BIAXIN [Suspect]
     Active Substance: CLARITHROMYCIN
     Indication: PRODUCT USED FOR UNKNOWN INDICATION
     Route: 065

REACTIONS (3)
  - Pruritus allergic [Unknown]
  - Dermatitis allergic [Unknown]
  - Drug hypersensitivity [Unknown]
